FAERS Safety Report 6230790-7 (Version None)
Quarter: 2009Q2

REPORT INFORMATION
  Report Type: 
  Country: None (occurrence: None)
  Receive Date: 20090616
  Receipt Date: 20090604
  Transmission Date: 20091009
  Serious: Yes (Other)
  Sender: FDA-Public Use
  Company Number: US-JNJFOC-20090603751

PATIENT
  Sex: Male
  Weight: 76.2 kg

DRUGS (1)
  1. EXTRA STRENGTH TYLENOL [Suspect]
     Indication: INSOMNIA
     Dosage: TAKING 2 GELTABS ONE HOUR BEFORE BEDTIME, AS NEEDED SINCE 2008.

REACTIONS (4)
  - CHEST PAIN [None]
  - DYSPNOEA [None]
  - EXPIRED DRUG ADMINISTERED [None]
  - FEELING ABNORMAL [None]
